FAERS Safety Report 10682066 (Version 1)
Quarter: 2014Q4

REPORT INFORMATION
  Report Type: Spontaneous
  Country: US (occurrence: None)
  Receive Date: 20141229
  Receipt Date: 20141229
  Transmission Date: 20150529
  Serious: No
  Sender: FDA-Public Use
  Company Number: None

PATIENT
  Age: 46 Year
  Sex: Female
  Weight: 83.92 kg

DRUGS (1)
  1. FETZIMA [Suspect]
     Active Substance: LEVOMILNACIPRAN HYDROCHLORIDE
     Indication: SEASONAL AFFECTIVE DISORDER
     Dates: start: 20141024, end: 20141227

REACTIONS (4)
  - Flushing [None]
  - Alcohol intolerance [None]
  - Alcohol use [None]
  - Treatment noncompliance [None]

NARRATIVE: CASE EVENT DATE: 20141224
